FAERS Safety Report 11319306 (Version 1)
Quarter: 2015Q3

REPORT INFORMATION
  Report Type: Spontaneous
  Country: US (occurrence: None)
  Receive Date: 20150727
  Receipt Date: 20150727
  Transmission Date: 20151125
  Serious: No
  Sender: FDA-Public Use
  Company Number: None

PATIENT
  Age: 3 Month
  Sex: Male
  Weight: 79.38 kg

DRUGS (1)
  1. RECLAST [Suspect]
     Active Substance: ZOLEDRONIC ACID
     Indication: OSTEOPOROSIS
     Dosage: AS NEEDED INTO A VEIN

REACTIONS (7)
  - Arthralgia [None]
  - Eye pain [None]
  - Chills [None]
  - Pyrexia [None]
  - Musculoskeletal pain [None]
  - Headache [None]
  - Feeling abnormal [None]

NARRATIVE: CASE EVENT DATE: 20150721
